FAERS Safety Report 4976611-1 (Version None)
Quarter: 2006Q2

REPORT INFORMATION
  Report Type: 
  Country: None (occurrence: None)
  Receive Date: 20060419
  Receipt Date: 20051017
  Transmission Date: 20061013
  Serious: Yes (Hospitalization, Other)
  Sender: FDA-Public Use
  Company Number: US-MERCK-0510USA07692

PATIENT
  Age: 46 Year
  Sex: Male

DRUGS (3)
  1. VIOXX [Suspect]
     Route: 048
  2. ZESTRIL [Concomitant]
     Route: 048
  3. HYDRODIURIL [Concomitant]
     Route: 048

REACTIONS (10)
  - ANAEMIA [None]
  - ANKLE FRACTURE [None]
  - CAROTID ARTERY OCCLUSION [None]
  - CEREBROVASCULAR ACCIDENT [None]
  - CHEST PAIN [None]
  - DYSPEPSIA [None]
  - DYSURIA [None]
  - OTITIS MEDIA ACUTE [None]
  - RED BLOOD CELL SEDIMENTATION RATE INCREASED [None]
  - UPPER RESPIRATORY TRACT INFECTION [None]
